FAERS Safety Report 8261560-6 (Version None)
Quarter: 2012Q2

REPORT INFORMATION
  Report Type: 
  Country: None (occurrence: None)
  Receive Date: 20120405
  Receipt Date: 20120328
  Transmission Date: 20120825
  Serious: Yes (Hospitalization, Other)
  Sender: FDA-Public Use
  Company Number: US-BAYER-2011-051055

PATIENT
  Age: 34 Year
  Sex: Female
  Weight: 70.295 kg

DRUGS (7)
  1. YAZ [Suspect]
     Dosage: UNK
  2. TYLOX [Concomitant]
  3. PHENERGAN HCL [Concomitant]
  4. DICYCLOMINE [Concomitant]
     Dosage: UNK
     Dates: start: 20080424, end: 20080925
  5. OMEPRAZOLE [Concomitant]
     Dosage: 20 MG, UNK
     Route: 048
     Dates: start: 20070101, end: 20080101
  6. OMEPRAZOLE [Concomitant]
     Dosage: UNK
     Dates: start: 20080424, end: 20080925
  7. DICYCLOMINE [Concomitant]
     Dosage: 10 MG, QID
     Route: 048
     Dates: start: 20070101, end: 20080101

REACTIONS (12)
  - DIARRHOEA [None]
  - PAIN [None]
  - DYSPEPSIA [None]
  - CONSTIPATION [None]
  - EMOTIONAL DISORDER [None]
  - FLATULENCE [None]
  - ANXIETY [None]
  - DEPRESSION [None]
  - CHOLECYSTITIS CHRONIC [None]
  - GALLBLADDER DISORDER [None]
  - SCAR [None]
  - ABDOMINAL DISTENSION [None]
